FAERS Safety Report 5067100-7 (Version None)
Quarter: 2006Q3

REPORT INFORMATION
  Report Type: 
  Country: None (occurrence: None)
  Receive Date: 20060801
  Receipt Date: 20060728
  Transmission Date: 20061208
  Serious: Yes (Other)
  Sender: FDA-Public Use
  Company Number: US-BRISTOL-MYERS SQUIBB COMPANY-13459060

PATIENT
  Age: 36 Year
  Sex: Female
  Weight: 74 kg

DRUGS (4)
  1. DEFINITY [Suspect]
     Indication: VENTRICULAR DYSFUNCTION
     Route: 042
     Dates: start: 20060727
  2. NORFLOXACIN [Concomitant]
  3. BENTYL [Concomitant]
  4. CONTRACEPTIVE [Concomitant]

REACTIONS (4)
  - DYSPNOEA [None]
  - SNEEZING [None]
  - SWELLING FACE [None]
  - URTICARIA [None]
